FAERS Safety Report 12239664 (Version 3)
Quarter: 2016Q2

REPORT INFORMATION
  Report Type: Spontaneous
  Country: US (occurrence: US)
  Receive Date: 20160405
  Receipt Date: 20160503
  Transmission Date: 20160815
  Serious: Yes (Life-Threatening)
  Sender: FDA-Public Use
  Company Number: PHEH2016US008021

PATIENT
  Age: 64 Year
  Sex: Female
  Weight: 101 kg

DRUGS (2)
  1. COSENTYX [Suspect]
     Active Substance: SECUKINUMAB
     Indication: PSORIATIC ARTHROPATHY
     Dosage: 150 MG, QMO
     Route: 058
  2. COSENTYX [Suspect]
     Active Substance: SECUKINUMAB
     Indication: PSORIASIS
     Dosage: BOOSTER
     Route: 030
     Dates: start: 201510, end: 20151103

REACTIONS (11)
  - Swollen tongue [Recovered/Resolved]
  - Chest discomfort [Unknown]
  - Dyspnoea [Recovered/Resolved]
  - Type I hypersensitivity [Unknown]
  - Urticaria [Recovered/Resolved]
  - Asthma [Unknown]
  - Laryngeal oedema [Unknown]
  - Wheezing [Unknown]
  - Incorrect route of drug administration [Unknown]
  - Rash [Unknown]
  - Peripheral swelling [Unknown]

NARRATIVE: CASE EVENT DATE: 20151103
